FAERS Safety Report 19835568 (Version 1)
Quarter: 2021Q3

REPORT INFORMATION
  Report Type: Spontaneous
  Country: CN (occurrence: CN)
  Receive Date: 20210915
  Receipt Date: 20210915
  Transmission Date: 20211014
  Serious: Yes (Other)
  Sender: FDA-Public Use
  Company Number: CN-PFIZER INC-202101140100

PATIENT
  Age: 17 Year
  Sex: Male

DRUGS (2)
  1. MINOCIN [Suspect]
     Active Substance: MINOCYCLINE HYDROCHLORIDE
     Indication: SYMPTOMATIC TREATMENT
     Dosage: 100 MG, 2X/DAY
     Route: 048
     Dates: start: 20210806, end: 20210809
  2. TAZOCIN [Suspect]
     Active Substance: PIPERACILLIN SODIUM\TAZOBACTAM SODIUM
     Indication: SYMPTOMATIC TREATMENT
     Dosage: 4.5 MG, 3X/DAY
     Route: 041
     Dates: start: 20210806, end: 20210809

REACTIONS (1)
  - Hepatic function abnormal [Recovering/Resolving]

NARRATIVE: CASE EVENT DATE: 20210806
